FAERS Safety Report 24573854 (Version 1)
Quarter: 2024Q4

REPORT INFORMATION
  Report Type: Spontaneous
  Country: TR (occurrence: TR)
  Receive Date: 20241103
  Receipt Date: 20241103
  Transmission Date: 20250115
  Serious: Yes (Hospitalization, Other)
  Sender: OXFORD PHARMACEUTICALS, LLC
  Company Number: TR-Oxford Pharmaceuticals, LLC-2164337

PATIENT
  Age: 2 Month
  Sex: Female

DRUGS (8)
  1. LEVETIRACETAM [Suspect]
     Active Substance: LEVETIRACETAM
     Indication: Seizure
  2. PHENYTOIN [Suspect]
     Active Substance: PHENYTOIN
  3. PHENOBARBITAL [Suspect]
     Active Substance: PHENOBARBITAL
  4. CLOBAZAM [Suspect]
     Active Substance: CLOBAZAM
  5. VIGABATRIN [Suspect]
     Active Substance: VIGABATRIN
  6. PYRIDOXINE [Suspect]
     Active Substance: PYRIDOXINE
  7. CLONAZEPAM [Suspect]
     Active Substance: CLONAZEPAM
  8. TOPIRAMATE [Suspect]
     Active Substance: TOPIRAMATE

REACTIONS (2)
  - Drug ineffective [Unknown]
  - Product use issue [Unknown]
